FAERS Safety Report 11923907 (Version 3)
Quarter: 2016Q2

REPORT INFORMATION
  Report Type: Spontaneous
  Country: JP (occurrence: JP)
  Receive Date: 20160118
  Receipt Date: 20160408
  Transmission Date: 20160815
  Serious: Yes (Hospitalization)
  Sender: FDA-Public Use
  Company Number: JP-JNJFOC-20151216817

PATIENT
  Age: 72 Year
  Sex: Male
  Weight: 47 kg

DRUGS (11)
  1. PREDONINE [Concomitant]
     Active Substance: PREDNISOLONE\PREDNISOLONE ACETATE\PREDNISOLONE SODIUM SUCCINATE
     Indication: HORMONE-REFRACTORY PROSTATE CANCER
     Dosage: AFTER BREAKFAST AND AFTER DINNER
     Route: 048
     Dates: start: 20151231, end: 20160106
  2. PREDONINE [Concomitant]
     Active Substance: PREDNISOLONE\PREDNISOLONE ACETATE\PREDNISOLONE SODIUM SUCCINATE
     Indication: HORMONE-REFRACTORY PROSTATE CANCER
     Dosage: AFTER BREAKFAST AND AFTER DINNER
     Route: 048
     Dates: start: 20160107, end: 20160120
  3. PREDONINE [Concomitant]
     Active Substance: PREDNISOLONE\PREDNISOLONE ACETATE\PREDNISOLONE SODIUM SUCCINATE
     Indication: HORMONE-REFRACTORY PROSTATE CANCER
     Dosage: AFTER BREAKFAST AND AFTER DINNER
     Route: 048
     Dates: start: 20160121
  4. AMLODIPINE BESILATE [Concomitant]
     Active Substance: AMLODIPINE BESYLATE
     Indication: HYPERTENSION
     Dosage: AFTER BREAKFAST
     Route: 048
     Dates: start: 20140822, end: 20151204
  5. NESINA [Concomitant]
     Active Substance: ALOGLIPTIN BENZOATE
     Dosage: AFTER BREAKFAST
     Route: 048
  6. PREDONINE [Concomitant]
     Active Substance: PREDNISOLONE\PREDNISOLONE ACETATE\PREDNISOLONE SODIUM SUCCINATE
     Indication: HORMONE-REFRACTORY PROSTATE CANCER
     Dosage: AFTER BREAKFAST AND AFTER DINNER
     Route: 048
     Dates: start: 20151120, end: 20151204
  7. LOXONIN [Suspect]
     Active Substance: LOXOPROFEN SODIUM
     Indication: BACK PAIN
     Route: 048
     Dates: start: 20140502, end: 20151204
  8. FLUVASTATIN SODIUM. [Concomitant]
     Active Substance: FLUVASTATIN SODIUM
     Indication: DYSLIPIDAEMIA
     Dosage: AFTER BREAKFAST
     Route: 048
     Dates: start: 20131129, end: 20151204
  9. ZYTIGA [Suspect]
     Active Substance: ABIRATERONE ACETATE
     Indication: HORMONE-REFRACTORY PROSTATE CANCER
     Route: 048
     Dates: start: 20151120, end: 20151204
  10. PREDONINE [Concomitant]
     Active Substance: PREDNISOLONE\PREDNISOLONE ACETATE\PREDNISOLONE SODIUM SUCCINATE
     Indication: HORMONE-REFRACTORY PROSTATE CANCER
     Dosage: AFTER BREAKFAST AND AFTER DINNER
     Route: 048
     Dates: start: 20151217, end: 20151230
  11. FERROUS SULFATE. [Concomitant]
     Active Substance: FERROUS SULFATE
     Indication: ANAEMIA
     Route: 048
     Dates: start: 20150123, end: 20151204

REACTIONS (6)
  - Adrenal insufficiency [Recovered/Resolved]
  - Renal tubular necrosis [Recovered/Resolved]
  - Hypokalaemia [Recovered/Resolved]
  - Renal disorder [Recovering/Resolving]
  - Treatment noncompliance [Unknown]
  - Anaemia [Recovering/Resolving]

NARRATIVE: CASE EVENT DATE: 20151204
